FAERS Safety Report 10591517 (Version 2)
Quarter: 2015Q2

REPORT INFORMATION
  Report Type: Spontaneous
  Country: US (occurrence: US)
  Receive Date: 20141118
  Receipt Date: 20150508
  Transmission Date: 20150821
  Serious: Yes (Hospitalization, Other)
  Sender: FDA-Public Use
  Company Number: US-UCBSA-2014018441

PATIENT
  Age: 66 Year
  Sex: Female
  Weight: 84 kg

DRUGS (3)
  1. PRIMIDONE. [Concomitant]
     Active Substance: PRIMIDONE
     Indication: CONVULSION PROPHYLAXIS
     Dosage: 250 MG, 3X/DAY (TID)
     Route: 048
  2. KEPPRA XR [Suspect]
     Active Substance: LEVETIRACETAM
     Indication: SEIZURE
     Dosage: 750 MG, ONCE DAILY (QD)(3 TO 4 YEARS AGO)
     Route: 048
     Dates: start: 2009
  3. LEVOTHYROXINE [Concomitant]
     Active Substance: LEVOTHYROXINE
     Indication: THYROIDECTOMY
     Dosage: 175 MCG AT AT TOTAL DAILY DOSE
     Route: 048

REACTIONS (6)
  - Constipation [Unknown]
  - Renal cancer [Recovered/Resolved]
  - Procedural nausea [Not Recovered/Not Resolved]
  - Procedural pain [Not Recovered/Not Resolved]
  - Cataract [Unknown]
  - Dizziness [Recovered/Resolved]

NARRATIVE: CASE EVENT DATE: 2014
